FAERS Safety Report 5455073-4 (Version None)
Quarter: 2007Q3

REPORT INFORMATION
  Report Type: 
  Country: None (occurrence: None)
  Receive Date: 20070913
  Receipt Date: 20070828
  Transmission Date: 20080115
  Serious: Yes (Disabling)
  Sender: FDA-Public Use
  Company Number: 6037807

PATIENT
  Age: 49 Year
  Sex: Male

DRUGS (2)
  1. CIPROFLOXACIN [Suspect]
     Indication: PROSTATITIS
     Dosage: 1000 MG (500 MG, 2 IN 1 D)  ORAL
     Route: 048
     Dates: start: 20070307, end: 20070311
  2. OMEPRAZOLE [Concomitant]

REACTIONS (2)
  - PARAESTHESIA [None]
  - TENDONITIS [None]
